FAERS Safety Report 10171011 (Version 1)
Quarter: 2014Q2

REPORT INFORMATION
  Report Type: Spontaneous
  Country: US (occurrence: None)
  Receive Date: 20140512
  Receipt Date: 20140512
  Transmission Date: 20141212
  Serious: Yes (Other)
  Sender: FDA-Public Use
  Company Number: 2014P1003915

PATIENT
  Age: 29 Year
  Sex: Female

DRUGS (1)
  1. MYORISAN 40 MG [Suspect]
     Dates: start: 20140108, end: 201403

REACTIONS (5)
  - Treatment noncompliance [None]
  - Maternal exposure timing unspecified [None]
  - Pregnancy [None]
  - Drug dose omission [None]
  - Abortion [None]
